FAERS Safety Report 5804474-0 (Version None)
Quarter: 2008Q3

REPORT INFORMATION
  Report Type: 
  Country: None (occurrence: None)
  Receive Date: 20080709
  Receipt Date: 20080704
  Transmission Date: 20090109
  Serious: Yes (Death)
  Sender: FDA-Public Use
  Company Number: B0520006A

PATIENT
  Age: 60 Year
  Sex: Male

DRUGS (5)
  1. ZANTAC [Suspect]
     Indication: DRUG USE FOR UNKNOWN INDICATION
     Dosage: 10MG PER DAY
     Route: 042
     Dates: start: 20060507, end: 20060602
  2. PROPOFOL [Suspect]
     Indication: DRUG USE FOR UNKNOWN INDICATION
     Route: 042
     Dates: start: 20060507, end: 20060602
  3. FUROSEMIDE [Suspect]
     Indication: DRUG USE FOR UNKNOWN INDICATION
     Dosage: 240MG THREE TIMES PER DAY
     Route: 042
     Dates: start: 20060507, end: 20060602
  4. SANDIMMUNE [Suspect]
     Indication: DRUG USE FOR UNKNOWN INDICATION
     Dosage: 400MG TWICE PER DAY
     Route: 048
     Dates: start: 20060507, end: 20060522
  5. CELLCEPT [Suspect]
     Indication: DRUG USE FOR UNKNOWN INDICATION
     Dosage: 1G TWICE PER DAY
     Route: 048
     Dates: start: 20060507, end: 20060522

REACTIONS (1)
  - PANCREATITIS NECROTISING [None]
